FAERS Safety Report 6308455-2 (Version None)
Quarter: 2009Q3

REPORT INFORMATION
  Report Type: 
  Country: None (occurrence: None)
  Receive Date: 20090813
  Receipt Date: 20090804
  Transmission Date: 20100115
  Serious: Yes (Other)
  Sender: FDA-Public Use
  Company Number: PHHY2009CN21688

PATIENT
  Sex: Female

DRUGS (1)
  1. SEBIVO [Suspect]
     Dosage: UNK
     Route: 048
     Dates: start: 20090401

REACTIONS (2)
  - CAESAREAN SECTION [None]
  - DRUG EXPOSURE DURING PREGNANCY [None]
